FAERS Safety Report 9257488 (Version 3)
Quarter: 2013Q2

REPORT INFORMATION
  Report Type: Spontaneous
  Country: US (occurrence: US)
  Receive Date: 20130426
  Receipt Date: 20130617
  Transmission Date: 20140414
  Serious: No
  Sender: FDA-Public Use
  Company Number: US-PFIZER INC-2013130570

PATIENT
  Age: 3 Year
  Sex: Male

DRUGS (2)
  1. SERTRALINE HCL [Suspect]
     Dosage: 0.5 ML, 1X/DAY
     Route: 048
     Dates: start: 20130412
  2. AMOXICILLIN [Concomitant]
     Dosage: 400MG/5ML
     Dates: end: 20130421

REACTIONS (2)
  - Off label use [Recovered/Resolved]
  - Vomiting [Unknown]
